FAERS Safety Report 5188655-8 (Version None)
Quarter: 2006Q4

REPORT INFORMATION
  Report Type: 
  Country: None (occurrence: None)
  Receive Date: 20061221
  Receipt Date: 20061019
  Transmission Date: 20070319
  Serious: No
  Sender: FDA-Public Use
  Company Number: US-AMGEN-US197501

PATIENT
  Sex: Female

DRUGS (1)
  1. ENBREL [Suspect]
     Indication: ANKYLOSING SPONDYLITIS
     Route: 058
     Dates: start: 20041201, end: 20060920

REACTIONS (3)
  - ANKYLOSING SPONDYLITIS [None]
  - CONDITION AGGRAVATED [None]
  - INTERVERTEBRAL DISC PROTRUSION [None]
